FAERS Safety Report 12770133 (Version 1)
Quarter: 2016Q3

REPORT INFORMATION
  Report Type: Spontaneous
  Country: US (occurrence: US)
  Receive Date: 20160922
  Receipt Date: 20160922
  Transmission Date: 20161109
  Serious: No
  Sender: FDA-Public Use
  Company Number: US-PFIZER INC-2016440576

PATIENT
  Age: 73 Year
  Sex: Female

DRUGS (6)
  1. MEDROL [Suspect]
     Active Substance: METHYLPREDNISOLONE
     Indication: BACK DISORDER
     Dosage: 5 DF, UNK (5 ON DAY 2)
  2. MEDROL [Suspect]
     Active Substance: METHYLPREDNISOLONE
     Dosage: 1 DF, UNK
  3. MEDROL [Suspect]
     Active Substance: METHYLPREDNISOLONE
     Dosage: 3 DF, UNK
  4. MEDROL [Suspect]
     Active Substance: METHYLPREDNISOLONE
     Dosage: 2 DF, UNK
  5. MEDROL [Suspect]
     Active Substance: METHYLPREDNISOLONE
     Indication: KNEE DEFORMITY
     Dosage: 6 DF, UNK (SIX TABLETS ON DAY 1)
  6. MEDROL [Suspect]
     Active Substance: METHYLPREDNISOLONE
     Dosage: 4 DF, UNK

REACTIONS (1)
  - Drug ineffective [Unknown]
